FAERS Safety Report 5495389-9 (Version None)
Quarter: 2007Q4

REPORT INFORMATION
  Report Type: 
  Country: None (occurrence: None)
  Receive Date: 20071024
  Receipt Date: 20071015
  Transmission Date: 20080405
  Serious: Yes (Other)
  Sender: FDA-Public Use
  Company Number: RU-GENENTECH-248792

PATIENT
  Sex: Male
  Weight: 80 kg

DRUGS (4)
  1. RITUXIMAB [Suspect]
     Indication: B-CELL LYMPHOMA
     Dosage: 375 MG/M2, UNK
     Route: 042
     Dates: start: 20070404
  2. ENZASTAURIN [Suspect]
     Indication: B-CELL LYMPHOMA
     Dosage: 500 MG, QD
     Route: 048
     Dates: start: 20070405
  3. GEMCITABINE HCL [Suspect]
     Indication: B-CELL LYMPHOMA
     Dosage: 1000 MG/M2, UNK
     Route: 042
     Dates: start: 20070405
  4. OXALIPLATIN [Suspect]
     Indication: B-CELL LYMPHOMA
     Dosage: 100 MG/M2, UNK
     Route: 042
     Dates: start: 20070405

REACTIONS (2)
  - HYPOAESTHESIA [None]
  - SENSORY LOSS [None]
